FAERS Safety Report 17975056 (Version 2)
Quarter: 2020Q3

REPORT INFORMATION
  Report Type: Spontaneous
  Country: US (occurrence: US)
  Receive Date: 20200702
  Receipt Date: 20200717
  Transmission Date: 20201103
  Serious: No
  Sender: FDA-Public Use
  Company Number: US-SA-2020SA169698

PATIENT

DRUGS (1)
  1. SELSUN BLUE 2?IN?1 [Suspect]
     Active Substance: SELENIUM SULFIDE

REACTIONS (2)
  - Hair texture abnormal [Unknown]
  - Hair injury [Unknown]
